FAERS Safety Report 19607766 (Version 2)
Quarter: 2021Q4

REPORT INFORMATION
  Report Type: Report from Study
  Country: None (occurrence: US)
  Receive Date: 20210726
  Receipt Date: 20211005
  Transmission Date: 20220303
  Serious: Yes (Other)
  Sender: FDA-Public Use
  Company Number: US-ABBVIE-21K-163-4000411-00

PATIENT
  Age: 58 Year
  Sex: Female

DRUGS (1)
  1. HUMIRA [Suspect]
     Active Substance: ADALIMUMAB
     Indication: Ankylosing spondylitis
     Route: 058
     Dates: start: 20210627

REACTIONS (6)
  - Syncope [Unknown]
  - Hypotension [Unknown]
  - Fatigue [Unknown]
  - Dizziness [Recovering/Resolving]
  - Inflammation [Recovering/Resolving]
  - Arrhythmia [Unknown]

NARRATIVE: CASE EVENT DATE: 20210101
